FAERS Safety Report 21466740 (Version 1)
Quarter: 2022Q4

REPORT INFORMATION
  Report Type: Spontaneous
  Country: AT (occurrence: AT)
  Receive Date: 20221017
  Receipt Date: 20221017
  Transmission Date: 20230113
  Serious: Yes (Disabling)
  Sender: FDA-Public Use
  Company Number: AT-NOVARTISPH-NVSC2022AT230746

PATIENT
  Age: 39 Year
  Sex: Female
  Weight: 62 kg

DRUGS (8)
  1. CYCLOSPORINE [Interacting]
     Active Substance: CYCLOSPORINE
     Indication: Immunosuppression
     Dosage: 100 MG (50 MG, 2X/DAY)
     Route: 065
  2. CYCLOSPORINE [Interacting]
     Active Substance: CYCLOSPORINE
     Dosage: 50 MG, QD (25 MG, 2X/DAY)
     Route: 065
     Dates: start: 20220827
  3. ENALAPRIL MALEATE\LERCANIDIPINE HYDROCHLORIDE [Concomitant]
     Active Substance: ENALAPRIL MALEATE\LERCANIDIPINE HYDROCHLORIDE
     Indication: Product used for unknown indication
     Dosage: 20 MG, QD (20 MG, 1X/DAY)
     Route: 065
  4. PANTOPRAZOLE SODIUM [Concomitant]
     Active Substance: PANTOPRAZOLE SODIUM
     Indication: Product used for unknown indication
     Dosage: 20 MG, QD (20 MG, 1X/DAY (1-0-0)
     Route: 065
  5. ARANESP [Concomitant]
     Active Substance: DARBEPOETIN ALFA
     Indication: Product used for unknown indication
     Dosage: 40 UG, QW (40 UG, WEEKLY)
     Route: 065
  6. PREDNISOLONE [Concomitant]
     Active Substance: PREDNISOLONE
     Indication: Product used for unknown indication
     Dosage: 5 MG, QD (5 MG, 1X/DAY)
     Route: 065
  7. ATORVASTATIN +PHARMA [Concomitant]
     Indication: Product used for unknown indication
     Dosage: 20 MG, QD (20 MG, 1X/DAY)
     Route: 065
  8. CELLCEPT [Concomitant]
     Active Substance: MYCOPHENOLATE MOFETIL
     Indication: Product used for unknown indication
     Dosage: 1000 MG, QD (500 MG, 2X/DAY)
     Route: 065

REACTIONS (4)
  - Intentional product use issue [Recovered/Resolved with Sequelae]
  - Drug level increased [Recovered/Resolved with Sequelae]
  - Labelled drug-drug interaction medication error [Recovered/Resolved with Sequelae]
  - Off label use [Recovered/Resolved with Sequelae]

NARRATIVE: CASE EVENT DATE: 20020817
